FAERS Safety Report 6510487-6 (Version None)
Quarter: 2009Q4

REPORT INFORMATION
  Report Type: 
  Country: None (occurrence: None)
  Receive Date: 20091217
  Receipt Date: 20091201
  Transmission Date: 20100525
  Serious: Yes (Death)
  Sender: FDA-Public Use
  Company Number: AE-2009-002

PATIENT
  Age: 49 Year
  Sex: Female

DRUGS (5)
  1. METFORMIN HCL [Suspect]
     Indication: DIABETES MELLITUS
     Dosage: 1000MG,BID,ORAL
     Route: 048
     Dates: start: 20060101
  2. AMISULPRIDE [Suspect]
     Indication: ABNORMAL BEHAVIOUR
     Dosage: 600MG,QD,ORAL
     Route: 048
     Dates: start: 20060101
  3. DIAZEPAM [Concomitant]
  4. HYDROCORTISONE [Concomitant]
  5. QUETIAPINE [Concomitant]

REACTIONS (6)
  - ANTIPSYCHOTIC DRUG LEVEL INCREASED [None]
  - CARDIOMYOPATHY [None]
  - DRUG TOXICITY [None]
  - OVERDOSE [None]
  - RENAL IMPAIRMENT [None]
  - SUDDEN DEATH [None]
